FAERS Safety Report 9904493 (Version 1)
Quarter: 2014Q1

REPORT INFORMATION
  Report Type: Spontaneous
  Country: US (occurrence: US)
  Receive Date: 20140218
  Receipt Date: 20140218
  Transmission Date: 20141002
  Serious: Yes (Hospitalization)
  Sender: FDA-Public Use
  Company Number: US-BAYER-2014-020408

PATIENT
  Age: 34 Year
  Sex: Male
  Weight: 89.9 kg

DRUGS (12)
  1. BAYER GENUINE ASPIRIN ORIGINAL STRENGTH [Suspect]
     Dosage: 250 DF ONCE
     Route: 048
     Dates: start: 20130917, end: 20130917
  2. ALCOHOL [Suspect]
     Dosage: UNK
     Dates: start: 20130917, end: 20130917
  3. VILAZODONE [Concomitant]
  4. CYMBALTA [Concomitant]
     Dosage: UNK
     Dates: start: 20130918
  5. LOVENOX [Concomitant]
     Dosage: UNK
     Dates: start: 20130918, end: 20130919
  6. PROTONIX [Concomitant]
     Dosage: UNK
     Dates: start: 20130918, end: 20130919
  7. ATIVAN [Concomitant]
     Dosage: UNK
     Dates: start: 20130918, end: 20130919
  8. FOLATE SODIUM [Concomitant]
     Dosage: UNK
     Dates: start: 20130918, end: 20130919
  9. VITAMIN B1 [Concomitant]
     Dosage: UNK
     Dates: start: 20130918, end: 20130919
  10. THERAGRAN-M [Concomitant]
     Dosage: UNK
     Dates: start: 20130918, end: 20130919
  11. SEROQUEL [Concomitant]
     Dosage: UNK
     Dates: start: 20130918, end: 20130919
  12. LEVAQUIN [Concomitant]
     Dosage: UNK
     Dates: start: 20130918, end: 20130919

REACTIONS (13)
  - Suicide attempt [Recovered/Resolved]
  - Intentional overdose [Recovered/Resolved]
  - Toxicity to various agents [None]
  - Vomiting [None]
  - Nausea [None]
  - Procedural vomiting [None]
  - Metabolic acidosis [None]
  - Liver function test abnormal [None]
  - Thirst [None]
  - Tachypnoea [None]
  - Leukocytosis [None]
  - Faeces discoloured [None]
  - Sinus tachycardia [None]
